FAERS Safety Report 10606455 (Version 2)
Quarter: 2014Q4

REPORT INFORMATION
  Report Type: Spontaneous
  Country: FI (occurrence: FI)
  Receive Date: 20141125
  Receipt Date: 20141209
  Transmission Date: 20150529
  Serious: No
  Sender: FDA-Public Use
  Company Number: FI-BAYER-2014-168283

PATIENT
  Age: 75 Year
  Sex: Female

DRUGS (3)
  1. PRIMASPAN [Concomitant]
     Dosage: UNK
     Dates: end: 201411
  2. CIPROXIN [Suspect]
     Active Substance: CIPROFLOXACIN
     Indication: URINARY TRACT INFECTION
     Dosage: 500 MG, DAILY DOSE
     Dates: start: 20141001, end: 20141010
  3. HIPEKSAL [Concomitant]
     Indication: PROPHYLAXIS URINARY TRACT INFECTION

REACTIONS (3)
  - Dermal cyst [Not Recovered/Not Resolved]
  - Subcutaneous haematoma [Not Recovered/Not Resolved]
  - Epistaxis [Not Recovered/Not Resolved]
